FAERS Safety Report 25685957 (Version 2)
Quarter: 2025Q3

REPORT INFORMATION
  Report Type: Spontaneous
  Country: CH (occurrence: CH)
  Receive Date: 20250815
  Receipt Date: 20250825
  Transmission Date: 20251020
  Serious: Yes (Hospitalization, Other)
  Sender: NOVO NORDISK
  Company Number: CH-NOVOPROD-1497705

PATIENT
  Age: 62 Year
  Sex: Male
  Weight: 88 kg

DRUGS (3)
  1. OZEMPIC [Suspect]
     Active Substance: SEMAGLUTIDE
     Indication: Overweight
     Route: 058
     Dates: start: 202307, end: 20231209
  2. ASPIRIN [Concomitant]
     Active Substance: ASPIRIN
  3. TRIVERAM [AMLODIPINE BESILATE;ATORVASTATIN CALCIUM;PERINDOPRIL ARGININ [Concomitant]

REACTIONS (2)
  - Intestinal obstruction [Recovered/Resolved]
  - Off label use [Recovered/Resolved]

NARRATIVE: CASE EVENT DATE: 20230701
